FAERS Safety Report 7552721-X (Version None)
Quarter: 2011Q2

REPORT INFORMATION
  Report Type: 
  Country: None (occurrence: None)
  Receive Date: 20110616
  Receipt Date: 20110613
  Transmission Date: 20111010
  Serious: Yes (Hospitalization)
  Sender: FDA-Public Use
  Company Number: US-CEPHALON-2011002971

PATIENT
  Sex: Male
  Weight: 57 kg

DRUGS (2)
  1. RITUXAN [Concomitant]
     Indication: NON-HODGKIN'S LYMPHOMA
     Dates: start: 20110412, end: 20110501
  2. TREANDA [Suspect]
     Indication: NON-HODGKIN'S LYMPHOMA
     Route: 042
     Dates: start: 20110412, end: 20110511

REACTIONS (11)
  - DEMYELINATING POLYNEUROPATHY [None]
  - GAIT DISTURBANCE [None]
  - CONSTIPATION [None]
  - BACK PAIN [None]
  - NEUROPATHY PERIPHERAL [None]
  - NON-HODGKIN'S LYMPHOMA [None]
  - CARDIAC FAILURE CONGESTIVE [None]
  - BALANCE DISORDER [None]
  - AORTIC STENOSIS [None]
  - HYPONATRAEMIA [None]
  - DIZZINESS [None]
